FAERS Safety Report 13686454 (Version 1)
Quarter: 2017Q2

REPORT INFORMATION
  Report Type: Spontaneous
  Country: US (occurrence: US)
  Receive Date: 20170623
  Receipt Date: 20170623
  Transmission Date: 20170830
  Serious: Yes (Other)
  Sender: FDA-Public Use
  Company Number: US-UCBSA-2017023960

PATIENT
  Age: 62 Year
  Sex: Female

DRUGS (6)
  1. LIDOCAINE. [Concomitant]
     Active Substance: LIDOCAINE
     Indication: PRODUCT USED FOR UNKNOWN INDICATION
     Dosage: UNKNOWN DOSE
     Route: 014
  2. DEXAMETHASONE. [Concomitant]
     Active Substance: DEXAMETHASONE
     Indication: PRODUCT USED FOR UNKNOWN INDICATION
     Dosage: UNKNOWN DOSE
     Route: 014
  3. CIMZIA [Suspect]
     Active Substance: CERTOLIZUMAB PEGOL
     Indication: RHEUMATOID ARTHRITIS
     Dosage: UNKNOWN DOSE
     Dates: start: 201010, end: 201109
  4. HYALURONIC ACID [Concomitant]
     Active Substance: HYALURONIC ACID
     Indication: PRODUCT USED FOR UNKNOWN INDICATION
     Dosage: FIVE INJECTIONS ON WEEKLY BASIS
     Route: 014
  5. PREDNISONE. [Concomitant]
     Active Substance: PREDNISONE
     Indication: RHEUMATOID ARTHRITIS
     Dosage: UNKNOWN DOSE
  6. METHOTREXATE. [Concomitant]
     Active Substance: METHOTREXATE
     Indication: RHEUMATOID ARTHRITIS
     Dosage: UNKNOWN DOSE

REACTIONS (2)
  - Arthritis infective [Recovering/Resolving]
  - Drug ineffective [Unknown]
